FAERS Safety Report 5257352-2 (Version None)
Quarter: 2007Q1

REPORT INFORMATION
  Report Type: 
  Country: None (occurrence: None)
  Receive Date: 20070307
  Receipt Date: 20070305
  Transmission Date: 20070707
  Serious: Yes (Death, Hospitalization)
  Sender: FDA-Public Use
  Company Number: US-BRISTOL-MYERS SQUIBB COMPANY-13700927

PATIENT
  Age: 93 Year
  Sex: Male

DRUGS (1)
  1. WARFARIN SODIUM [Suspect]
     Route: 048

REACTIONS (2)
  - CARDIAC DEATH [None]
  - HAEMORRHAGE [None]
